FAERS Safety Report 4055833 (Version 1)
Quarter: 2020Q3

REPORT INFORMATION
  Report Type: Spontaneous
  Country: US (occurrence: None)
  Receive Date: 20031229
  Receipt Date: 20031229
  Transmission Date: 20201105
  Serious: Yes (Other)
  Sender: FDA-Public Use
  Company Number: None

PATIENT

DRUGS (2)
  1. EQUAGESIC [Suspect]
     Active Substance: ASPIRIN\MEPROBAMATE
     Dosage: TABLET
  2. FLUNIXIN MEGLUMINE. [Suspect]
     Active Substance: FLUNIXIN MEGLUMINE
     Dosage: INJECTABLE

REACTIONS (1)
  - Medication error [None]
